FAERS Safety Report 7130422-X (Version None)
Quarter: 2010Q4

REPORT INFORMATION
  Report Type: 
  Country: None (occurrence: None)
  Receive Date: 20101116
  Receipt Date: 20101105
  Transmission Date: 20110411
  Serious: Yes (Other)
  Sender: FDA-Public Use
  Company Number: 750430

PATIENT
  Age: 63 Year
  Sex: Male

DRUGS (2)
  1. CARBOPLATIN [Suspect]
     Indication: BLADDER CANCER
     Dosage: 405 MG MILLIGRAM(S),
     Dates: start: 20101014
  2. GEMCITABINE [Concomitant]

REACTIONS (3)
  - HAEMATURIA [None]
  - PLATELET COUNT DECREASED [None]
  - RASH [None]
